FAERS Safety Report 24466780 (Version 1)
Quarter: 2024Q4

REPORT INFORMATION
  Report Type: Report from Study
  Country: US (occurrence: US)
  Receive Date: 20241018
  Receipt Date: 20241018
  Transmission Date: 20250115
  Serious: No
  Sender: ROCHE
  Company Number: US-ROCHE-3551347

PATIENT
  Age: 56 Year
  Sex: Female
  Weight: 131.54 kg

DRUGS (6)
  1. XOLAIR [Suspect]
     Active Substance: OMALIZUMAB
     Indication: Idiopathic urticaria
     Route: 058
     Dates: start: 20240321
  2. XOLAIR [Suspect]
     Active Substance: OMALIZUMAB
     Route: 058
     Dates: start: 2016, end: 2019
  3. CYPROHEPTADINE [Concomitant]
     Active Substance: CYPROHEPTADINE
  4. ZYRTEC [Concomitant]
     Active Substance: CETIRIZINE HYDROCHLORIDE
  5. MUCINEX [Concomitant]
     Active Substance: GUAIFENESIN
  6. PANCREAZE [AMYLASE;LIPASE;PROTEASE NOS] [Concomitant]

REACTIONS (5)
  - Urticaria [Not Recovered/Not Resolved]
  - Pruritus [Not Recovered/Not Resolved]
  - COVID-19 [Unknown]
  - Cough [Not Recovered/Not Resolved]
  - Pharyngeal disorder [Not Recovered/Not Resolved]

NARRATIVE: CASE EVENT DATE: 20211201
